FAERS Safety Report 7781855-X (Version None)
Quarter: 2011Q3

REPORT INFORMATION
  Report Type: 
  Country: None (occurrence: None)
  Receive Date: 20110927
  Receipt Date: 20110919
  Transmission Date: 20111222
  Serious: Yes (Other)
  Sender: FDA-Public Use
  Company Number: BR-BRISTOL-MYERS SQUIBB COMPANY-16085581

PATIENT
  Age: 28 Year
  Sex: Male
  Weight: 57 kg

DRUGS (1)
  1. HYDREA [Suspect]
     Indication: SICKLE CELL ANAEMIA
     Dosage: 1 DF : 2 TABS IN A DAY AND 3 TABS THE NEXT DAY,FOR 5 OR 6 YEARS
     Route: 048
     Dates: end: 20110730

REACTIONS (1)
  - SPERMATOGENESIS ABNORMAL [None]
